FAERS Safety Report 7601482-4 (Version None)
Quarter: 2011Q3

REPORT INFORMATION
  Report Type: 
  Country: None (occurrence: None)
  Receive Date: 20110711
  Receipt Date: 20110623
  Transmission Date: 20111222
  Serious: No
  Sender: FDA-Public Use
  Company Number: US-B.I. PHARMACEUTICALS,INC./RIDGEFIELD-2011-BP-11342BP

PATIENT
  Age: 84 Year
  Sex: Male
  Weight: 96.62 kg

DRUGS (8)
  1. PRADAXA [Suspect]
  2. VITAMIN TAB [Concomitant]
     Route: 048
  3. ATENOLOL [Concomitant]
     Indication: HYPERTENSION
     Dosage: 25 MG
     Route: 048
     Dates: start: 20110131
  4. LISINOPRIL [Concomitant]
     Dosage: 20 MG
  5. PRADAXA [Suspect]
     Indication: ATRIAL FIBRILLATION
     Dosage: 300 MG
     Route: 048
     Dates: start: 20110207
  6. ZOCOR [Concomitant]
     Indication: BLOOD CHOLESTEROL INCREASED
     Route: 048
  7. MECLIZINE [Concomitant]
     Dosage: 12.5 MG
     Dates: start: 20110510
  8. ASPIRIN [Concomitant]
     Dosage: 81 MG
     Route: 048
     Dates: start: 20110208

REACTIONS (2)
  - DIZZINESS [None]
  - DYSPEPSIA [None]
